FAERS Safety Report 4507918-X (Version None)
Quarter: 2004Q4

REPORT INFORMATION
  Report Type: 
  Country: None (occurrence: None)
  Receive Date: 20041123
  Receipt Date: 20041118
  Transmission Date: 20050328
  Serious: Yes (Other)
  Sender: FDA-Public Use
  Company Number: BR-ROCHE-386746

PATIENT
  Age: 20 Year
  Sex: Male
  Weight: 65 kg

DRUGS (2)
  1. ROACUTAN [Suspect]
     Indication: ACNE
     Route: 048
     Dates: start: 20040415, end: 20041015
  2. UNSPECIFIED DRUGS [Concomitant]
     Indication: ACNE
     Route: 048
     Dates: start: 20040415, end: 20040615

REACTIONS (3)
  - ABNORMAL BEHAVIOUR [None]
  - DEPRESSED MOOD [None]
  - DEPRESSION [None]
